FAERS Safety Report 7569004-4 (Version None)
Quarter: 2011Q2

REPORT INFORMATION
  Report Type: 
  Country: None (occurrence: None)
  Receive Date: 20110623
  Receipt Date: 20110617
  Transmission Date: 20111010
  Serious: Yes (Other)
  Sender: FDA-Public Use
  Company Number: US-PFIZER INC-2011113999

PATIENT
  Sex: Female

DRUGS (4)
  1. ACETYLCYSTEINE [Concomitant]
     Indication: MERYCISM
     Dosage: 1200 MG, 2X/DAY
  2. GENOTROPIN [Suspect]
     Indication: GROWTH HORMONE DEFICIENCY
     Dosage: 1.2 MG, DAILY
     Route: 058
     Dates: start: 20100201
  3. PROZAC [Concomitant]
     Indication: MERYCISM
     Dosage: 15.2 MG, 1X/DAY
  4. PRILOSEC [Concomitant]
     Indication: GASTROOESOPHAGEAL REFLUX DISEASE
     Dosage: 40 MG, 1X/DAY

REACTIONS (2)
  - CONVULSION [None]
  - ELECTROCARDIOGRAM QT PROLONGED [None]
